FAERS Safety Report 6688923-4 (Version None)
Quarter: 2010Q2

REPORT INFORMATION
  Report Type: 
  Country: None (occurrence: None)
  Receive Date: 20100420
  Receipt Date: 20100407
  Transmission Date: 20101027
  Serious: Yes (Hospitalization, Other)
  Sender: FDA-Public Use
  Company Number: US-ELI_LILLY_AND_COMPANY-US201004001954

PATIENT
  Sex: Male

DRUGS (3)
  1. FORTEO [Suspect]
     Indication: OSTEOPOROSIS
     Dosage: 20 UG, DAILY (1/D)
     Dates: start: 20091101, end: 20100201
  2. VITAMINS WITH MINERALS [Concomitant]
  3. CALCIUM [Concomitant]

REACTIONS (11)
  - CARDIAC DISORDER [None]
  - CARDIAC FAILURE CONGESTIVE [None]
  - CARDIAC FIBRILLATION [None]
  - DYSPNOEA [None]
  - FATIGUE [None]
  - FLUID RETENTION [None]
  - HEART RATE INCREASED [None]
  - ILL-DEFINED DISORDER [None]
  - MALAISE [None]
  - MULTIPLE MYELOMA [None]
  - PAIN [None]
